FAERS Safety Report 5448110-4 (Version None)
Quarter: 2007Q3

REPORT INFORMATION
  Report Type: 
  Country: None (occurrence: None)
  Receive Date: 20070803
  Receipt Date: 20070430
  Transmission Date: 20080115
  Serious: Yes (Hospitalization, Other)
  Sender: FDA-Public Use
  Company Number: 200711088BWH

PATIENT
  Age: 44 Year
  Sex: Female
  Weight: 70.3075 kg

DRUGS (7)
  1. NEXAVAR [Suspect]
     Indication: METASTASIS
     Dosage: 400 MG, BID, ORAL; 200 MG, QD, ORAL
     Route: 048
     Dates: start: 20070222, end: 20070304
  2. NEXAVAR [Suspect]
     Indication: NEUROENDOCRINE CARCINOMA
     Dosage: 400 MG, BID, ORAL; 200 MG, QD, ORAL
     Route: 048
     Dates: start: 20070222, end: 20070304
  3. NEXAVAR [Suspect]
     Indication: METASTASIS
     Dosage: 400 MG, BID, ORAL; 200 MG, QD, ORAL
     Route: 048
     Dates: start: 20070319
  4. NEXAVAR [Suspect]
     Indication: NEUROENDOCRINE CARCINOMA
     Dosage: 400 MG, BID, ORAL; 200 MG, QD, ORAL
     Route: 048
     Dates: start: 20070319
  5. OXYCODONE HCL [Concomitant]
  6. EMEND [Concomitant]
  7. MULTI-VITAMIN [Concomitant]

REACTIONS (7)
  - ANGIOEDEMA [None]
  - HEADACHE [None]
  - HYPERSENSITIVITY [None]
  - PALMAR-PLANTAR ERYTHRODYSAESTHESIA SYNDROME [None]
  - PYREXIA [None]
  - RASH [None]
  - RASH GENERALISED [None]
